FAERS Safety Report 5225767-4 (Version None)
Quarter: 2007Q1

REPORT INFORMATION
  Report Type: 
  Country: None (occurrence: None)
  Receive Date: 20070131
  Receipt Date: 20070131
  Transmission Date: 20070707
  Serious: Yes (Hospitalization)
  Sender: FDA-Public Use
  Company Number: None

PATIENT
  Age: 54 Year
  Sex: Male
  Weight: 96.6 kg

DRUGS (6)
  1. WARFARIN SODIUM [Suspect]
     Dosage: 10MG QD, AT HS, BY MOUTH
     Dates: start: 20061017, end: 20061113
  2. ADALAT CC [Concomitant]
  3. LISINOPRIL [Concomitant]
  4. AMOXICILLIN [Concomitant]
  5. CLARITHROMYCIN [Concomitant]
  6. ENOXAPARIN NA [Concomitant]

REACTIONS (1)
  - INTERNATIONAL NORMALISED RATIO INCREASED [None]
